FAERS Safety Report 4613619-X (Version None)
Quarter: 2005Q1

REPORT INFORMATION
  Report Type: 
  Country: None (occurrence: None)
  Receive Date: 20050318
  Receipt Date: 20050318
  Transmission Date: 20050727
  Serious: Yes (Hospitalization)
  Sender: FDA-Public Use
  Company Number: None

PATIENT
  Age: 83 Year
  Sex: Male
  Weight: 83 kg

DRUGS (6)
  1. GLIPIZIDE [Suspect]
     Indication: DIABETES MELLITUS NON-INSULIN-DEPENDENT
     Dosage: 5 MG PO TWICE DAILY
     Route: 048
     Dates: start: 20041001, end: 20041201
  2. PRAZOSIN HCL [Concomitant]
  3. NIFEDIPINE [Concomitant]
  4. TRAVOPROST [Concomitant]
  5. DORZOLAMIDE [Concomitant]
  6. RANITIDINE [Concomitant]

REACTIONS (1)
  - HYPOGLYCAEMIA [None]
